FAERS Safety Report 21124759 (Version 1)
Quarter: 2022Q3

REPORT INFORMATION
  Report Type: Spontaneous
  Country: US (occurrence: US)
  Receive Date: 20220725
  Receipt Date: 20220725
  Transmission Date: 20221026
  Serious: Yes (Hospitalization)
  Sender: FDA-Public Use
  Company Number: US-MYLANLABS-2020M1055745

PATIENT
  Age: 71 Year
  Sex: Female

DRUGS (10)
  1. OLANZAPINE [Suspect]
     Active Substance: OLANZAPINE
     Indication: Dementia Alzheimer^s type
     Dosage: 5 MILLIGRAM, QD, RECEIVING FROM 2 YEARS
     Route: 065
  2. OLANZAPINE [Suspect]
     Active Substance: OLANZAPINE
     Indication: Behaviour disorder
  3. DIPHENHYDRAMINE [Suspect]
     Active Substance: DIPHENHYDRAMINE
     Indication: Dementia Alzheimer^s type
     Dosage: 250 MILLIGRAM, ONE DOSE
     Route: 042
  4. QUETIAPINE [Suspect]
     Active Substance: QUETIAPINE
     Indication: Dementia Alzheimer^s type
     Dosage: UNK
     Route: 065
  5. VALPROIC ACID [Suspect]
     Active Substance: VALPROIC ACID
     Indication: Dementia Alzheimer^s type
     Dosage: 250 MILLIGRAM, BID
     Route: 065
  6. VALPROIC ACID [Suspect]
     Active Substance: VALPROIC ACID
     Indication: Agitation
     Dosage: 250 MILLIGRAM, STARTED ON DAY 3 AND DISCONTINUED ON DAY 5
     Route: 048
  7. DONEPEZIL [Suspect]
     Active Substance: DONEPEZIL
     Indication: Dementia Alzheimer^s type
     Dosage: UNK
     Route: 065
  8. ESCITALOPRAM [Suspect]
     Active Substance: ESCITALOPRAM OXALATE
     Indication: Dementia Alzheimer^s type
     Dosage: UNK
     Route: 065
  9. SERTRALINE [Concomitant]
     Active Substance: SERTRALINE HYDROCHLORIDE
     Indication: Dementia Alzheimer^s type
     Dosage: 25 MILLIGRAM, QD
     Route: 065
  10. MEMANTINE [Concomitant]
     Active Substance: MEMANTINE
     Indication: Dementia Alzheimer^s type
     Dosage: 2 MILLIGRAM, BID
     Route: 065

REACTIONS (11)
  - Dystonia [Recovered/Resolved]
  - Withdrawal syndrome [Recovered/Resolved]
  - Muscle rigidity [Recovered/Resolved]
  - Tremor [Recovered/Resolved]
  - Delirium [Recovered/Resolved]
  - Tremor [Recovered/Resolved]
  - Lethargy [Recovered/Resolved]
  - Decreased appetite [Recovered/Resolved]
  - Alopecia [Recovered/Resolved]
  - Adverse drug reaction [Unknown]
  - Off label use [Unknown]
